FAERS Safety Report 6756128-4 (Version None)
Quarter: 2010Q2

REPORT INFORMATION
  Report Type: 
  Country: None (occurrence: None)
  Receive Date: 20100603
  Receipt Date: 20100603
  Transmission Date: 20101027
  Serious: Yes (Hospitalization)
  Sender: FDA-Public Use
  Company Number: None

PATIENT
  Age: 65 Year
  Sex: Male
  Weight: 97.73 kg

DRUGS (1)
  1. METOPROLOL TARTRATE [Suspect]
     Dosage: 50 MG BID PO
     Route: 048
     Dates: start: 20100304

REACTIONS (1)
  - FALL [None]
